FAERS Safety Report 11884807 (Version 1)
Quarter: 2016Q1

REPORT INFORMATION
  Report Type: Spontaneous
  Country: US (occurrence: US)
  Receive Date: 20160104
  Receipt Date: 20160104
  Transmission Date: 20160526
  Serious: No
  Sender: FDA-Public Use
  Company Number: US-ASTRAZENECA-2015SF27676

PATIENT
  Sex: Female

DRUGS (3)
  1. BYDUREON [Suspect]
     Active Substance: EXENATIDE
     Indication: TYPE 2 DIABETES MELLITUS
     Dosage: 2
     Route: 058
     Dates: start: 201511, end: 201512
  2. BYDUREON [Suspect]
     Active Substance: EXENATIDE
     Indication: WEIGHT DECREASED
     Dosage: 2
     Route: 058
     Dates: start: 201511, end: 201512
  3. FARXIGA [Suspect]
     Active Substance: DAPAGLIFLOZIN PROPANEDIOL
     Indication: TYPE 2 DIABETES MELLITUS
     Route: 048

REACTIONS (6)
  - Constipation [Unknown]
  - Injection site swelling [Unknown]
  - Cough [Unknown]
  - Aspiration [Unknown]
  - Gastrooesophageal reflux disease [Unknown]
  - Glycosylated haemoglobin increased [Unknown]
